FAERS Safety Report 16353400 (Version 1)
Quarter: 2019Q2

REPORT INFORMATION
  Report Type: Spontaneous
  Country: DE (occurrence: DE)
  Receive Date: 20190524
  Receipt Date: 20190524
  Transmission Date: 20190711
  Serious: Yes (Other)
  Sender: FDA-Public Use
  Company Number: DE-ELI_LILLY_AND_COMPANY-DE201905006006

PATIENT
  Age: 69 Year
  Sex: Female

DRUGS (1)
  1. FORSTEO [Suspect]
     Active Substance: TERIPARATIDE
     Indication: PRODUCT USED FOR UNKNOWN INDICATION
     Dosage: UNK, UNKNOWN
     Route: 058
     Dates: start: 201902

REACTIONS (5)
  - Head injury [Unknown]
  - Hypoaesthesia [Unknown]
  - Headache [Unknown]
  - Hemiplegia [Unknown]
  - Dizziness [Unknown]

NARRATIVE: CASE EVENT DATE: 20190415
